FAERS Safety Report 5960520-5 (Version None)
Quarter: 2008Q4

REPORT INFORMATION
  Report Type: 
  Country: None (occurrence: None)
  Receive Date: 20081120
  Receipt Date: 20080328
  Transmission Date: 20090506
  Serious: No
  Sender: FDA-Public Use
  Company Number: US-ABBOTT-08P-163-0444547-00

PATIENT
  Sex: Female

DRUGS (4)
  1. BIAXIN [Suspect]
     Indication: BRONCHITIS
     Route: 048
     Dates: start: 20080225, end: 20080305
  2. BIAXIN [Suspect]
     Indication: SINUSITIS
  3. MULTIVIT [Concomitant]
     Indication: VITAMIN SUPPLEMENTATION
     Route: 048
  4. ALBUTEROL [Concomitant]
     Indication: ASTHMA
     Route: 055

REACTIONS (3)
  - OEDEMA PERIPHERAL [None]
  - PAIN IN EXTREMITY [None]
  - SKIN LESION [None]
